FAERS Safety Report 20903921 (Version 1)
Quarter: 2022Q2

REPORT INFORMATION
  Report Type: Other
  Country: CA (occurrence: None)
  Receive Date: 20220602
  Receipt Date: 20220602
  Transmission Date: 20220720
  Serious: No
  Sender: FDA-Public Use
  Company Number: CA-ROCHE-2731212

PATIENT
  Sex: Male
  Weight: 6.73 kg

DRUGS (4)
  1. OCREVUS [Suspect]
     Active Substance: OCRELIZUMAB
     Indication: Product used for unknown indication
     Route: 064
  2. DTAP-IPV-HIB [Concomitant]
  3. FERROUS SULFATE [Concomitant]
     Active Substance: FERROUS SULFATE
  4. FLUCONAZOLE [Concomitant]
     Active Substance: FLUCONAZOLE

REACTIONS (6)
  - Premature baby [Unknown]
  - Malaise [Unknown]
  - Foetal exposure during pregnancy [Unknown]
  - Urinary tract infection bacterial [Recovered/Resolved]
  - Oral candidiasis [Recovered/Resolved]
  - Gastrooesophageal reflux disease [Recovered/Resolved]
